FAERS Safety Report 19634501 (Version 2)
Quarter: 2021Q4

REPORT INFORMATION
  Report Type: Spontaneous
  Country: US (occurrence: US)
  Receive Date: 20210729
  Receipt Date: 20211022
  Transmission Date: 20220303
  Serious: No
  Sender: FDA-Public Use
  Company Number: US-PARATEK PHARMACEUTICALS, INC.-2021PTK00103

PATIENT
  Age: 71 Year
  Sex: Female
  Weight: 83.9 kg

DRUGS (11)
  1. NUZYRA [Suspect]
     Active Substance: OMADACYCLINE
     Indication: Cellulitis
     Dosage: 450 MG, 1X/DAY
     Route: 048
     Dates: start: 20210608, end: 20210609
  2. NUZYRA [Suspect]
     Active Substance: OMADACYCLINE
     Indication: Lymphadenopathy
     Dosage: 300 MG, 1X/DAY
     Route: 048
     Dates: start: 20210610, end: 202106
  3. NUZYRA [Suspect]
     Active Substance: OMADACYCLINE
     Dosage: 300 MG, 1X/DAY
     Route: 048
     Dates: start: 202106, end: 202106
  4. NUZYRA [Suspect]
     Active Substance: OMADACYCLINE
     Dosage: 300 MG, ONCE
     Route: 048
     Dates: start: 202106, end: 202106
  5. MORPHINE SULFATE [Concomitant]
     Active Substance: MORPHINE SULFATE
     Dosage: UNK, 3X/DAY
  6. OXYCODONE INSTANT-RELEASE [Concomitant]
     Dosage: UNK, 3X/DAY
  7. LEVOTHYROXINE [Concomitant]
     Active Substance: LEVOTHYROXINE
  8. OTEZLA [Concomitant]
     Active Substance: APREMILAST
  9. LOSARTAN [Concomitant]
     Active Substance: LOSARTAN
     Dosage: UNK, 1X/DAY AT BEDTIME
  10. JORNAY PM EXTENDED-RELEASE [Concomitant]
     Active Substance: METHYLPHENIDATE HYDROCHLORIDE
     Dosage: 60 MG, 1X/DAY BEFORE BED
  11. LINZESS [Concomitant]
     Active Substance: LINACLOTIDE

REACTIONS (7)
  - Dyspnoea [Recovering/Resolving]
  - Palpitations [Recovered/Resolved]
  - Asthenia [Recovering/Resolving]
  - Tremor [Recovering/Resolving]
  - Chest discomfort [Recovered/Resolved]
  - Product dose omission issue [Recovered/Resolved]
  - Off label use [Recovered/Resolved]

NARRATIVE: CASE EVENT DATE: 20210601
